FAERS Safety Report 4964491-X (Version None)
Quarter: 2006Q2

REPORT INFORMATION
  Report Type: 
  Country: None (occurrence: None)
  Receive Date: 20060406
  Receipt Date: 20060406
  Transmission Date: 20061013
  Serious: Yes (Death)
  Sender: FDA-Public Use
  Company Number: None

PATIENT
  Sex: Female
  Weight: 70.7 kg

DRUGS (4)
  1. MIFEPREX [Suspect]
     Indication: ABORTION EARLY
     Dosage: 1 SINGLE ORAL DOSE
     Dates: start: 20060302
  2. MIFEPREX [Suspect]
     Indication: ABORTION INDUCED
     Dosage: 1 SINGLE ORAL DOSE
     Dates: start: 20060302
  3. MISOPROSTOL [Suspect]
     Dosage: 4 TABS X 1 VAGINAL DOSE
  4. VICODIN [Concomitant]

REACTIONS (24)
  - ABDOMINAL COMPARTMENT SYNDROME [None]
  - ABDOMINAL DISTENSION [None]
  - ABDOMINAL PAIN LOWER [None]
  - BACTERAEMIA [None]
  - BLOOD PRESSURE SYSTOLIC DECREASED [None]
  - DEHYDRATION [None]
  - DYSPNOEA [None]
  - ENDOMETRITIS [None]
  - GASTROINTESTINAL DISORDER [None]
  - GASTROINTESTINAL NECROSIS [None]
  - GENERAL PHYSICAL HEALTH DETERIORATION [None]
  - HEART RATE INCREASED [None]
  - INFECTION [None]
  - INTESTINAL ISCHAEMIA [None]
  - LACTIC ACIDOSIS [None]
  - MUSCLE SPASMS [None]
  - NAUSEA [None]
  - NECROSIS [None]
  - RENAL FAILURE [None]
  - RESPIRATORY RATE INCREASED [None]
  - SEPTIC SHOCK [None]
  - THROMBOSIS [None]
  - UTERINE DISORDER [None]
  - VOMITING [None]
